FAERS Safety Report 8339068 (Version 2)
Quarter: 2013Q2

REPORT INFORMATION
  Report Type: Spontaneous
  Country: US (occurrence: None)
  Receive Date: 20111202
  Receipt Date: 20121203
  Transmission Date: 20140414
  Serious: Yes (Hospitalization, Other)
  Sender: FDA-Public Use
  Company Number: 2011SP014622

PATIENT
  Age: 22 Year
  Sex: Female
  Weight: 190.5 kg

DRUGS (1)
  1. NUVARING [Suspect]
     Indication: CONTRACEPTION
     Dates: start: 200801, end: 200804

REACTIONS (8)
  - POST-TRAUMATIC STRESS DISORDER [None]
  - PULMONARY EMBOLISM [None]
  - THROMBOSIS [None]
  - Deep vein thrombosis [None]
  - Defect conduction intraventricular [None]
  - Skin lesion [None]
  - Upper respiratory tract infection [None]
  - Nausea [None]
